FAERS Safety Report 7208252-X (Version None)
Quarter: 2010Q4

REPORT INFORMATION
  Report Type: 
  Country: None (occurrence: None)
  Receive Date: 20101230
  Receipt Date: 20101230
  Transmission Date: 20110411
  Serious: Yes (Hospitalization)
  Sender: FDA-Public Use
  Company Number: None

PATIENT
  Sex: Male
  Weight: 60.3 kg

DRUGS (6)
  1. CYCLOPHOSPHAMIDE [Suspect]
     Dosage: 1253 MG
  2. DOXORUBICIN HYDROCHLORIDE [Suspect]
     Dosage: 66.8 MG
  3. ETOPOSIDE [Suspect]
     Dosage: 334 MG
  4. PREDNISONE [Suspect]
     Dosage: 500 MG
  5. RITUXIMAB (MOAB C2B8 ANTI CD20, CHIMERIC) [Suspect]
     Dosage: 626 MG
  6. VINCRISTINE SULFATE [Suspect]
     Dosage: 2.67MG

REACTIONS (5)
  - DEHYDRATION [None]
  - GASTRITIS [None]
  - MUCOSAL INFLAMMATION [None]
  - NAUSEA [None]
  - VOMITING [None]
